APPROVED DRUG PRODUCT: ESCLIM
Active Ingredient: ESTRADIOL
Strength: 0.075MG/24HR
Dosage Form/Route: SYSTEM;TRANSDERMAL
Application: N020847 | Product #004
Applicant: WOMEN FIRST HEALTHCARE INC
Approved: Aug 4, 1998 | RLD: No | RS: No | Type: DISCN